FAERS Safety Report 19591137 (Version 4)
Quarter: 2021Q4

REPORT INFORMATION
  Report Type: Spontaneous
  Country: GB (occurrence: GB)
  Receive Date: 20210721
  Receipt Date: 20211004
  Transmission Date: 20220303
  Serious: Yes (Hospitalization, Other)
  Sender: FDA-Public Use
  Company Number: GB-ROCHE-1753933

PATIENT
  Age: 43 Year
  Sex: Female

DRUGS (42)
  1. DOCETAXEL [Suspect]
     Active Substance: DOCETAXEL
     Indication: HER2 positive breast cancer
     Dosage: 148 MG, Q3W
     Route: 042
     Dates: start: 20160304, end: 20160617
  2. DOCETAXEL [Suspect]
     Active Substance: DOCETAXEL
     Dosage: UNK
     Route: 042
     Dates: start: 20160617
  3. TRASTUZUMAB [Suspect]
     Active Substance: TRASTUZUMAB
     Indication: HER2 positive breast cancer
     Dosage: MAINTENANCE DOSES
     Route: 042
     Dates: start: 20160324, end: 20210119
  4. TRASTUZUMAB [Suspect]
     Active Substance: TRASTUZUMAB
     Dosage: LOADING DOSE
     Route: 042
     Dates: start: 20160303
  5. PERTUZUMAB [Suspect]
     Active Substance: PERTUZUMAB
     Indication: HER2 positive breast cancer
     Dosage: LOADING DOSE
     Route: 042
     Dates: start: 20160303
  6. PERTUZUMAB [Suspect]
     Active Substance: PERTUZUMAB
     Indication: Breast cancer metastatic
     Dosage: MAINTENANCE DOSE
     Route: 042
     Dates: start: 20160324
  7. ADO-TRASTUZUMAB EMTANSINE [Suspect]
     Active Substance: ADO-TRASTUZUMAB EMTANSINE
     Indication: HER2 positive breast cancer
     Dosage: UNK
     Route: 042
     Dates: start: 202102, end: 202104
  8. APIXABAN [Concomitant]
     Active Substance: APIXABAN
     Indication: Acetabulum fracture
     Dosage: 2.5 MG, BID
     Route: 048
     Dates: start: 20170512
  9. AMITRIPTYLINE [Concomitant]
     Active Substance: AMITRIPTYLINE
     Indication: Acetabulum fracture
     Dosage: 10 MG
     Route: 048
     Dates: start: 20170522
  10. CALCIUM\CHOLECALCIFEROL [Concomitant]
     Active Substance: CALCIUM\CHOLECALCIFEROL
     Indication: Product used for unknown indication
     Dosage: 1 DF, QD
     Route: 048
     Dates: start: 20160225
  11. CHLORHEXIDINE HYDROCHLORIDE [Concomitant]
     Active Substance: CHLORHEXIDINE HYDROCHLORIDE
     Indication: Product used for unknown indication
     Dosage: 2 OT, QD
     Route: 061
     Dates: start: 20160324
  12. NEOMYCIN SULFATE [Concomitant]
     Active Substance: NEOMYCIN SULFATE
     Dosage: OINTMENT, CHLORHEXIDINE HYDROCHLORIDE 0.1% AND NEOMYCIN SULPHATE 0.5%
     Route: 061
     Dates: start: 20160324
  13. COCODAMOL [Concomitant]
     Active Substance: ACETAMINOPHEN\CODEINE PHOSPHATE
     Indication: Product used for unknown indication
     Dosage: 30 MG, 4X
     Route: 048
     Dates: end: 2016
  14. COCODAMOL [Concomitant]
     Active Substance: ACETAMINOPHEN\CODEINE PHOSPHATE
     Dosage: 30 MG, 4X
     Route: 048
     Dates: end: 201603
  15. COCODAMOL [Concomitant]
     Active Substance: ACETAMINOPHEN\CODEINE PHOSPHATE
     Dosage: 30 MG, TID
     Dates: start: 20160912
  16. CODEINE PHOSPHATE [Concomitant]
     Active Substance: CODEINE PHOSPHATE
     Indication: Product used for unknown indication
     Dosage: 30 MG, TID
     Route: 048
     Dates: start: 20160912
  17. DENOSUMAB [Concomitant]
     Active Substance: DENOSUMAB
     Indication: Bone disorder
     Dosage: 120 MG, QMN
     Route: 058
     Dates: start: 20160226
  18. DEXAMETHASONE [Concomitant]
     Active Substance: DEXAMETHASONE
     Dosage: 8 MG, BID
     Route: 048
     Dates: start: 20160302
  19. DICLOFENAC SODIUM [Concomitant]
     Active Substance: DICLOFENAC SODIUM
     Dosage: 1 %
     Route: 061
     Dates: start: 20161220
  20. DOMPERIDONE [Concomitant]
     Active Substance: DOMPERIDONE
     Dosage: 10 MG
     Route: 048
     Dates: start: 20160302
  21. IBUPROFEN [Concomitant]
     Active Substance: IBUPROFEN
     Indication: Product used for unknown indication
     Dosage: 400 MG, QID
     Route: 048
  22. LANSOPRAZOLE [Concomitant]
     Active Substance: LANSOPRAZOLE
     Indication: Prophylaxis
     Dosage: 30 UG
     Route: 048
     Dates: start: 20160324
  23. LIDOCAINE [Concomitant]
     Active Substance: LIDOCAINE
     Indication: Product used for unknown indication
     Dosage: 700 MG, QD
     Route: 062
     Dates: start: 20160307
  24. LOPERAMIDE [Concomitant]
     Active Substance: LOPERAMIDE
     Indication: Product used for unknown indication
     Dosage: 2 MG
     Route: 048
     Dates: start: 20160302
  25. LOSARTAN POTASSIUM [Concomitant]
     Active Substance: LOSARTAN POTASSIUM
     Indication: Product used for unknown indication
     Dosage: 50 MG, QD
     Route: 048
     Dates: start: 20160506
  26. MENTHOL [Concomitant]
     Active Substance: MENTHOL
     Indication: Product used for unknown indication
     Dosage: 2 %, TID
     Route: 061
     Dates: start: 20160307
  27. METFORMIN [Concomitant]
     Active Substance: METFORMIN HYDROCHLORIDE
     Indication: Product used for unknown indication
     Dosage: 850 MG
     Route: 065
  28. NAPROXEN [Concomitant]
     Active Substance: NAPROXEN
     Indication: Product used for unknown indication
     Dosage: 500 MG, TID
     Route: 048
  29. ORAMORPH SR SUSTAINED RELEASE [Concomitant]
     Active Substance: MORPHINE SULFATE
     Indication: Product used for unknown indication
     Dosage: 10 MG
     Route: 048
  30. OXYCODONE [Concomitant]
     Active Substance: OXYCODONE
     Indication: Product used for unknown indication
     Dosage: 10 MG
     Route: 048
     Dates: start: 20170512
  31. OXYCODONE [Concomitant]
     Active Substance: OXYCODONE
     Dosage: 15 MG
     Route: 048
     Dates: start: 20170512
  32. ACETAMINOPHEN [Concomitant]
     Active Substance: ACETAMINOPHEN
     Indication: Product used for unknown indication
     Dosage: 1 G, TID
     Route: 048
     Dates: start: 20160316, end: 20160415
  33. PREGABALIN [Concomitant]
     Active Substance: PREGABALIN
     Indication: Product used for unknown indication
     Dosage: 225 MG, BID
     Route: 048
     Dates: start: 20170516
  34. PREGABALIN [Concomitant]
     Active Substance: PREGABALIN
     Dosage: 75 MG, BID
     Route: 048
     Dates: start: 20160307
  35. PREGABALIN [Concomitant]
     Active Substance: PREGABALIN
     Dosage: 75 MG, BID
     Route: 048
     Dates: start: 20160307, end: 20170516
  36. PEGFILGRASTIM [Concomitant]
     Active Substance: PEGFILGRASTIM
     Indication: Product used for unknown indication
     Dosage: 6 MG
     Route: 058
     Dates: start: 20160302
  37. MORPHINE SULFATE [Concomitant]
     Active Substance: MORPHINE SULFATE
     Indication: Product used for unknown indication
     Dosage: 10 MG, BID
     Route: 048
     Dates: start: 20160311
  38. TRASTUZUMAB [Concomitant]
     Active Substance: TRASTUZUMAB
     Indication: Product used for unknown indication
     Dosage: 600 MG, Q3W
     Route: 058
     Dates: start: 20210514
  39. ANUSOL HC [BENZYL BENZOATE;BISMUTH OXIDE;BISMUTH SUBGALLATE;HYDROCORTI [Concomitant]
     Indication: Product used for unknown indication
     Dosage: 3 OT, QD
     Route: 061
     Dates: start: 20160324
  40. AMITRIPTYLINE HYDROCHLORIDE [Concomitant]
     Active Substance: AMITRIPTYLINE HYDROCHLORIDE
     Indication: Acetabulum fracture
     Dosage: 10 MG
     Route: 048
     Dates: start: 20170522
  41. CHLORHEXIDINE [Concomitant]
     Active Substance: CHLORHEXIDINE
     Indication: Product used for unknown indication
     Dosage: 2 UNK, 1X/DAY
     Route: 061
     Dates: start: 20160324
  42. LEVOMENTHOL [Concomitant]
     Active Substance: LEVOMENTHOL
     Indication: Product used for unknown indication
     Dosage: 2 %, 3X/DAY
     Route: 061
     Dates: start: 20160307

REACTIONS (11)
  - Skin discolouration [Not Recovered/Not Resolved]
  - Autonomic neuropathy [Recovered/Resolved]
  - Dysuria [Recovered/Resolved]
  - Nail bed tenderness [Recovered/Resolved]
  - Sciatica [Recovered/Resolved]
  - Neuropathy peripheral [Not Recovered/Not Resolved]
  - Hypokalaemia [Recovered/Resolved]
  - Fatigue [Recovered/Resolved]
  - Diarrhoea [Recovered/Resolved]
  - Anaemia [Recovered/Resolved]
  - Localised infection [Recovered/Resolved]

NARRATIVE: CASE EVENT DATE: 20160315
